FAERS Safety Report 6473069-0 (Version None)
Quarter: 2009Q4

REPORT INFORMATION
  Report Type: 
  Country: None (occurrence: None)
  Receive Date: 20091204
  Receipt Date: 20080423
  Transmission Date: 20100525
  Serious: Yes (Other)
  Sender: FDA-Public Use
  Company Number: ES-ELI_LILLY_AND_COMPANY-ES200804006037

PATIENT
  Age: 63 Year
  Sex: Male

DRUGS (6)
  1. CYMBALTA [Suspect]
     Indication: DEPRESSION
     Dosage: 60 MG, UNKNOWN
     Route: 048
     Dates: start: 20080401, end: 20080401
  2. METFORMIN HCL [Concomitant]
     Indication: TYPE 2 DIABETES MELLITUS
  3. GLIMEPIRIDE [Concomitant]
     Indication: TYPE 2 DIABETES MELLITUS
  4. DESLORATADINE [Concomitant]
     Indication: INFLUENZA
  5. PARACETAMOL [Concomitant]
     Indication: INFLUENZA
  6. CODEINE SUL TAB [Concomitant]
     Indication: INFLUENZA

REACTIONS (1)
  - HYPERTENSION [None]
